FAERS Safety Report 23062429 (Version 6)
Quarter: 2024Q1

REPORT INFORMATION
  Report Type: Spontaneous
  Country: US (occurrence: US)
  Receive Date: 20231013
  Receipt Date: 20240326
  Transmission Date: 20240409
  Serious: No
  Sender: FDA-Public Use
  Company Number: US-PFIZER INC-PV202300168081

PATIENT
  Age: 59 Year
  Sex: Female
  Weight: 81.65 kg

DRUGS (2)
  1. IBRANCE [Suspect]
     Active Substance: PALBOCICLIB
     Indication: Invasive lobular breast carcinoma
     Dosage: 125 MG, CYCLIC (ONE TABLET A DAY)
     Route: 048
  2. METOPROLOL [Concomitant]
     Active Substance: METOPROLOL
     Indication: Hypertension
     Dosage: 50 MG, 2X/DAY

REACTIONS (7)
  - Fatigue [Not Recovered/Not Resolved]
  - Pain [Recovering/Resolving]
  - Stomatitis [Recovering/Resolving]
  - Alopecia [Unknown]
  - Nausea [Unknown]
  - Vomiting [Unknown]
  - Increased tendency to bruise [Unknown]
